FAERS Safety Report 24644761 (Version 2)
Quarter: 2024Q4

REPORT INFORMATION
  Report Type: Spontaneous
  Country: US (occurrence: US)
  Receive Date: 20241121
  Receipt Date: 20241126
  Transmission Date: 20250115
  Serious: No
  Sender: SANOFI AVENTIS
  Company Number: US-SA-2024SA337199

PATIENT
  Age: 41 Year
  Sex: Female

DRUGS (2)
  1. DUPIXENT [Suspect]
     Active Substance: DUPILUMAB
     Indication: Dermatitis atopic
     Dosage: 300 MG, QOW
     Route: 058
     Dates: start: 202012
  2. INFLUENZA VIRUS VACCINE [Concomitant]
     Active Substance: INFLUENZA VIRUS VACCINE
     Dosage: UNK

REACTIONS (10)
  - Dermatitis atopic [Unknown]
  - Therapeutic response shortened [Unknown]
  - Fatigue [Unknown]
  - Myalgia [Unknown]
  - Depression [Unknown]
  - Dizziness [Unknown]
  - Mental disorder [Unknown]
  - Depressed mood [Unknown]
  - Panic reaction [Unknown]
  - Affective disorder [Unknown]

NARRATIVE: CASE EVENT DATE: 20241112
